FAERS Safety Report 5122399-3 (Version None)
Quarter: 2006Q3

REPORT INFORMATION
  Report Type: 
  Country: None (occurrence: None)
  Receive Date: 20060811
  Receipt Date: 20060706
  Transmission Date: 20061208
  Serious: No
  Sender: FDA-Public Use
  Company Number: S06-USA-02544-01

PATIENT
  Age: 87 Year
  Sex: Female

DRUGS (9)
  1. NAMENDA [Suspect]
     Indication: DEMENTIA ALZHEIMER'S TYPE
     Dosage: 10 MG BID PO
     Route: 048
     Dates: start: 20060630
  2. NAMENDA [Suspect]
     Indication: PROPHYLAXIS
     Dosage: 10 MG BID PO
     Route: 048
     Dates: start: 20060630
  3. NAMENDA [Suspect]
     Indication: PROPHYLAXIS
     Dosage: 5 MG QD PO
     Route: 048
     Dates: start: 20060609, end: 20060615
  4. NAMENDA [Suspect]
     Indication: PROPHYLAXIS
     Dosage: 5 MG BID PO
     Route: 048
     Dates: start: 20060616, end: 20060622
  5. NAMENDA [Suspect]
     Indication: PROPHYLAXIS
     Dosage: 15 MG QD PO
     Route: 048
     Dates: start: 20060623, end: 20060629
  6. LEXAPRO [Suspect]
     Indication: DEPRESSION
  7. SYNTHROID [Concomitant]
  8. PLAVIX [Concomitant]
  9. NORVASC [Concomitant]

REACTIONS (1)
  - DIZZINESS [None]
